FAERS Safety Report 8312913-9 (Version None)
Quarter: 2012Q2

REPORT INFORMATION
  Report Type: 
  Country: None (occurrence: None)
  Receive Date: 20120424
  Receipt Date: 20120417
  Transmission Date: 20120825
  Serious: Yes (Hospitalization)
  Sender: FDA-Public Use
  Company Number: US-008222

PATIENT
  Age: 50 Year
  Sex: Female

DRUGS (2)
  1. TRANEXAMIC ACID [Suspect]
     Indication: VAGINAL HAEMORRHAGE
     Dosage: VAGINAL
     Route: 067
  2. NUVARING [Concomitant]

REACTIONS (1)
  - CEREBROVASCULAR ACCIDENT [None]
